FAERS Safety Report 4650719-2 (Version None)
Quarter: 2005Q2

REPORT INFORMATION
  Report Type: 
  Country: None (occurrence: None)
  Receive Date: 20050429
  Receipt Date: 20050429
  Transmission Date: 20051028
  Serious: Yes (Other)
  Sender: FDA-Public Use
  Company Number: None

PATIENT
  Age: 78 Year
  Sex: Female
  Weight: 40.3701 kg

DRUGS (2)
  1. GENTAMICIN [Suspect]
     Indication: DIARRHOEA
     Dates: start: 20050214, end: 20050215
  2. GENTAMICIN [Suspect]
     Indication: PYREXIA
     Dates: start: 20050214, end: 20050215

REACTIONS (2)
  - DIZZINESS [None]
  - INFLUENZA [None]
